FAERS Safety Report 22091402 (Version 1)
Quarter: 2023Q1

REPORT INFORMATION
  Report Type: Report from Study
  Country: US (occurrence: US)
  Receive Date: 20230314
  Receipt Date: 20230314
  Transmission Date: 20230418
  Serious: Yes (Other)
  Sender: FDA-Public Use
  Company Number: US-JNJFOC-20230316430

PATIENT
  Age: 66 Year
  Sex: Female

DRUGS (3)
  1. SPRAVATO [Suspect]
     Active Substance: ESKETAMINE
     Indication: Depression
     Dates: start: 20230227, end: 20230227
  2. SPRAVATO [Suspect]
     Active Substance: ESKETAMINE
     Dates: start: 20230303, end: 20230303
  3. SPRAVATO [Suspect]
     Active Substance: ESKETAMINE
     Dates: start: 20230307, end: 20230307

REACTIONS (3)
  - Hallucination [Unknown]
  - Hypersomnia [Unknown]
  - Product dose omission issue [Unknown]

NARRATIVE: CASE EVENT DATE: 20230227
